FAERS Safety Report 26065983 (Version 1)
Quarter: 2025Q4

REPORT INFORMATION
  Report Type: Spontaneous
  Country: CN (occurrence: CN)
  Receive Date: 20251119
  Receipt Date: 20251119
  Transmission Date: 20260118
  Serious: Yes (Other)
  Sender: MALLINCKRODT
  Company Number: CN-MALLINCKRODT-MNK202507195

PATIENT
  Age: 2 Month
  Sex: Male

DRUGS (2)
  1. NITRIC OXIDE [Suspect]
     Active Substance: NITRIC OXIDE
     Indication: Newborn persistent pulmonary hypertension
     Dosage: UNKNOWN
  2. MILRINONE [Concomitant]
     Active Substance: MILRINONE
     Dosage: UNKNOWN

REACTIONS (9)
  - Pneumonia aspiration [Unknown]
  - Hepatic failure [Recovering/Resolving]
  - Seizure [Unknown]
  - Schwartz Jampel syndrome [Unknown]
  - Coagulopathy [Recovering/Resolving]
  - Upper respiratory tract infection [Unknown]
  - Muscle tightness [Unknown]
  - Condition aggravated [Unknown]
  - Hypotension [Unknown]
